FAERS Safety Report 5107816-7 (Version None)
Quarter: 2006Q3

REPORT INFORMATION
  Report Type: 
  Country: None (occurrence: None)
  Receive Date: 20060919
  Receipt Date: 20050511
  Transmission Date: 20061208
  Serious: Yes (Hospitalization, Other)
  Sender: FDA-Public Use
  Company Number: PHHO2005JP07720

PATIENT
  Age: 74 Year
  Sex: Female
  Weight: 37 kg

DRUGS (7)
  1. DIOVAN [Suspect]
     Indication: HYPERTENSION
     Dosage: 80 MG, QD
     Route: 048
     Dates: start: 20030303, end: 20030801
  2. DIOVAN [Suspect]
     Dosage: 80 MG, QD
     Route: 048
     Dates: start: 20040401, end: 20040721
  3. DIOVAN [Suspect]
     Dosage: 40 MG, QD
     Route: 048
     Dates: start: 20040722
  4. NORVASC [Suspect]
     Indication: HYPERTENSION
     Dosage: 5 MG, QD
     Route: 048
     Dates: start: 20030324, end: 20040401
  5. ARICEPT [Concomitant]
  6. CABASER [Suspect]
     Indication: PARKINSONISM
     Dosage: 0.25 MG, UNK
     Route: 048
     Dates: start: 20041018, end: 20041201
  7. TERNELIN [Concomitant]
     Indication: ASTHENIA

REACTIONS (9)
  - CEREBRAL INFARCTION [None]
  - DEHYDRATION [None]
  - DEPRESSED LEVEL OF CONSCIOUSNESS [None]
  - HYPERTENSION [None]
  - HYPOTENSION [None]
  - MUSCULAR WEAKNESS [None]
  - PARKINSON'S DISEASE [None]
  - PERIPHERAL PARALYSIS [None]
  - PUTAMEN HAEMORRHAGE [None]
